FAERS Safety Report 17664701 (Version 3)
Quarter: 2020Q2

REPORT INFORMATION
  Report Type: Spontaneous
  Country: US (occurrence: US)
  Receive Date: 20200414
  Receipt Date: 20200518
  Transmission Date: 20200713
  Serious: No
  Sender: FDA-Public Use
  Company Number: US-AMGEN-USASP2020059165

PATIENT
  Sex: Male

DRUGS (5)
  1. INSULIN [Concomitant]
     Active Substance: INSULIN NOS
     Indication: TYPE 1 DIABETES MELLITUS
     Dosage: 4 SHOTS A DAY OF TWO TYPES OF INSULIN
  2. INSULIN [Concomitant]
     Active Substance: INSULIN NOS
     Indication: TYPE 2 DIABETES MELLITUS
  3. ARANESP [Suspect]
     Active Substance: DARBEPOETIN ALFA
     Dosage: 4 MILLILITER, Q2WK
     Route: 065
  4. ARANESP [Suspect]
     Active Substance: DARBEPOETIN ALFA
     Indication: HAEMOGLOBIN ABNORMAL
     Dosage: 4 MILLILITER, Q2WK
     Route: 065
     Dates: start: 20200408
  5. ARANESP [Suspect]
     Active Substance: DARBEPOETIN ALFA
     Dosage: 4 MILLILITER, Q2WK
     Route: 065

REACTIONS (3)
  - Cough [Unknown]
  - Dyspnoea [Unknown]
  - Needle issue [Unknown]

NARRATIVE: CASE EVENT DATE: 20200408
